FAERS Safety Report 4731472-0 (Version None)
Quarter: 2005Q3

REPORT INFORMATION
  Report Type: 
  Country: None (occurrence: None)
  Receive Date: 20050801
  Receipt Date: 20050801
  Transmission Date: 20060218
  Serious: Yes (Life-Threatening, Hospitalization)
  Sender: FDA-Public Use
  Company Number: None

PATIENT
  Age: 61 Year
  Sex: Male
  Weight: 104 kg

DRUGS (2)
  1. WARFARIN    5MG [Suspect]
     Indication: DEEP VEIN THROMBOSIS
     Dosage: 15MG   DAILY   ORAL
     Route: 048
     Dates: start: 20040730, end: 20040814
  2. WARFARIN    5MG [Suspect]
     Indication: PULMONARY EMBOLISM
     Dosage: 15MG   DAILY   ORAL
     Route: 048
     Dates: start: 20040730, end: 20040814

REACTIONS (3)
  - DIARRHOEA [None]
  - DYSPNOEA [None]
  - UPPER GASTROINTESTINAL HAEMORRHAGE [None]
